FAERS Safety Report 9375371 (Version 2)
Quarter: 2013Q3

REPORT INFORMATION
  Report Type: Spontaneous
  Country: SE (occurrence: SE)
  Receive Date: 20130628
  Receipt Date: 20130712
  Transmission Date: 20140515
  Serious: Yes (Life-Threatening, Hospitalization, Disabling, Other)
  Sender: FDA-Public Use
  Company Number: SE-009507513-1306BEL012837

PATIENT
  Sex: Male
  Weight: 24 kg

DRUGS (8)
  1. SINGULAIR [Suspect]
     Dosage: 1 TABLET, QD
     Route: 048
     Dates: start: 200909, end: 20130619
  2. RISPERDAL [Concomitant]
  3. RITALIN [Concomitant]
  4. MELATONIN [Concomitant]
  5. SYMBICORT [Concomitant]
  6. CORTISONE [Concomitant]
     Route: 042
  7. RISPERDAL [Concomitant]
  8. BRICANYL [Concomitant]

REACTIONS (2)
  - Cardiac failure [Not Recovered/Not Resolved]
  - Allergic granulomatous angiitis [Not Recovered/Not Resolved]
